FAERS Safety Report 5648895-8 (Version None)
Quarter: 2008Q1

REPORT INFORMATION
  Report Type: 
  Country: None (occurrence: None)
  Receive Date: 20080303
  Receipt Date: 20080303
  Transmission Date: 20080703
  Serious: Yes (Hospitalization)
  Sender: FDA-Public Use
  Company Number: None

PATIENT
  Age: 77 Year
  Sex: Male

DRUGS (2)
  1. WARFARIN SODIUM [Suspect]
     Indication: ATRIAL FIBRILLATION
     Dosage: 2MG AT BEDTIME PO
     Route: 048
     Dates: start: 20080103, end: 20080121
  2. METRONIDAZOLE HCL [Suspect]
     Indication: CLOSTRIDIAL INFECTION
     Dosage: 500MG TID PO
     Route: 048
     Dates: start: 20080111, end: 20080121

REACTIONS (3)
  - EROSIVE OESOPHAGITIS [None]
  - GASTROINTESTINAL HAEMORRHAGE [None]
  - INTERNATIONAL NORMALISED RATIO INCREASED [None]
